FAERS Safety Report 18788975 (Version 4)
Quarter: 2021Q1

REPORT INFORMATION
  Report Type: Report from Study
  Country: KR (occurrence: KR)
  Receive Date: 20210126
  Receipt Date: 20210301
  Transmission Date: 20210419
  Serious: Yes (Hospitalization)
  Sender: FDA-Public Use
  Company Number: KR-ROCHE-2754959

PATIENT
  Age: 70 Year
  Sex: Male
  Weight: 60.8 kg

DRUGS (13)
  1. FLUNIL (SOUTH KOREA) [Concomitant]
     Dates: start: 20210121, end: 20210121
  2. OMPS [Concomitant]
     Dates: start: 20210121, end: 20210121
  3. GLUCONIL (SOUTH KOREA) [Concomitant]
     Indication: DIABETES MELLITUS
  4. CRESTOR [Concomitant]
     Active Substance: ROSUVASTATIN CALCIUM
     Indication: HYPERLIPIDAEMIA
  5. ASPIRIN PROTECT [Concomitant]
     Active Substance: ASPIRIN
     Indication: ANGINA PECTORIS
  6. ANEPOL [Concomitant]
     Dates: start: 20210121, end: 20210121
  7. MIDAZOLAM. [Concomitant]
     Active Substance: MIDAZOLAM
     Dates: start: 20210121, end: 20210121
  8. URSA [Concomitant]
     Active Substance: URSODIOL
     Indication: HEPATIC CIRRHOSIS
  9. GODEX (SOUTH KOREA) [Concomitant]
     Indication: HEPATIC CIRRHOSIS
  10. BROPIUM [Concomitant]
     Dates: start: 20210121, end: 20210121
  11. NO DRUG ADMINISTERED [Suspect]
     Active Substance: UNSPECIFIED INGREDIENT
     Indication: PRODUCT USED FOR UNKNOWN INDICATION
     Route: 065
  12. GALVUSMET [Concomitant]
     Active Substance: METFORMIN HYDROCHLORIDE\VILDAGLIPTIN
     Indication: DIABETES MELLITUS
  13. ASPIRIN PROTECT [Concomitant]
     Active Substance: ASPIRIN
     Indication: MYOCARDIAL ISCHAEMIA

REACTIONS (1)
  - Bile duct stenosis [Recovered/Resolved]

NARRATIVE: CASE EVENT DATE: 20210120
